FAERS Safety Report 11755359 (Version 1)
Quarter: 2015Q4

REPORT INFORMATION
  Report Type: Spontaneous
  Country: US (occurrence: US)
  Receive Date: 20151119
  Receipt Date: 20151119
  Transmission Date: 20160304
  Serious: Yes (Hospitalization)
  Sender: FDA-Public Use
  Company Number: US-INCYTE CORPORATION-2015IN005904

PATIENT
  Age: 77 Year
  Sex: Male

DRUGS (19)
  1. JAKAFI [Suspect]
     Active Substance: RUXOLITINIB
     Indication: MYELOFIBROSIS
     Dosage: 15 MG, BID
     Route: 048
     Dates: start: 2013
  2. CEFADROXIL MONOHYDRATE [Concomitant]
     Active Substance: CEFADROXIL
  3. FLEXERIL [Concomitant]
     Active Substance: CYCLOBENZAPRINE HYDROCHLORIDE
  4. HYDROCODONE/PARACETAMOL [Concomitant]
     Active Substance: ACETAMINOPHEN\HYDROCODONE BITARTRATE
  5. LEVOFLOXACIN. [Concomitant]
     Active Substance: LEVOFLOXACIN
  6. NYSTATIN. [Concomitant]
     Active Substance: NYSTATIN
  7. BACTRIM [Concomitant]
     Active Substance: SULFAMETHOXAZOLE\TRIMETHOPRIM
  8. CEPHALEXIN                         /00145501/ [Concomitant]
     Active Substance: CEPHALEXIN
  9. CIPROFLOXACIN. [Concomitant]
     Active Substance: CIPROFLOXACIN
  10. MELOXICAM. [Concomitant]
     Active Substance: MELOXICAM
  11. ZANTAC [Concomitant]
     Active Substance: RANITIDINE HYDROCHLORIDE
  12. ANDROXY [Concomitant]
     Active Substance: FLUOXYMESTERONE
  13. HYDROUS [Concomitant]
  14. AMICAR [Concomitant]
     Active Substance: AMINOCAPROIC ACID
  15. SYNTHROID [Concomitant]
     Active Substance: LEVOTHYROXINE SODIUM
  16. AUGMENTIN [Concomitant]
     Active Substance: AMOXICILLIN\CLAVULANATE POTASSIUM
  17. DOXYCYCLINE. [Concomitant]
     Active Substance: DOXYCYCLINE
  18. IBUPROFEN. [Concomitant]
     Active Substance: IBUPROFEN
  19. PROCRIT [Concomitant]
     Active Substance: ERYTHROPOIETIN

REACTIONS (2)
  - Drug dose omission [Recovered/Resolved]
  - Functional gastrointestinal disorder [Recovered/Resolved]

NARRATIVE: CASE EVENT DATE: 2015
